FAERS Safety Report 7602644-2 (Version None)
Quarter: 2011Q3

REPORT INFORMATION
  Report Type: 
  Country: None (occurrence: None)
  Receive Date: 20110712
  Receipt Date: 20110629
  Transmission Date: 20111222
  Serious: Yes (Other)
  Sender: FDA-Public Use
  Company Number: NL-ELI_LILLY_AND_COMPANY-NL201106005541

PATIENT
  Age: 38 Year
  Sex: Female

DRUGS (7)
  1. ZYPREXA [Suspect]
     Dosage: 20 MG, UNK
  2. ZYPREXA [Suspect]
     Indication: BIPOLAR DISORDER
     Dosage: 15 MG, UNK
  3. ZOPICLON [Concomitant]
  4. OXAZEPAM [Concomitant]
     Dosage: 10 MG, UNK
  5. VALPROIC ACID [Concomitant]
     Dosage: 600 MG, UNK
  6. LAMOTRIGINE [Concomitant]
  7. MIRTAZAPINE [Concomitant]
     Dosage: 1 DF, QD

REACTIONS (1)
  - GUILLAIN-BARRE SYNDROME [None]
